FAERS Safety Report 9743202 (Version 2)
Quarter: 2015Q3

REPORT INFORMATION
  Report Type: Spontaneous
  Country: US (occurrence: US)
  Receive Date: 20131210
  Receipt Date: 20150804
  Transmission Date: 20151125
  Serious: Yes (Hospitalization)
  Sender: FDA-Public Use
  Company Number: US-GILEAD-2009-0025012

PATIENT
  Age: 72 Year
  Sex: Female
  Weight: 42.64 kg

DRUGS (11)
  1. LETAIRIS [Suspect]
     Active Substance: AMBRISENTAN
     Indication: PULMONARY ARTERIAL HYPERTENSION
     Route: 048
     Dates: start: 20080409
  2. TRAZODONE [Concomitant]
     Active Substance: TRAZODONE HYDROCHLORIDE
  3. FLUOXETINE [Concomitant]
     Active Substance: FLUOXETINE\FLUOXETINE HYDROCHLORIDE
  4. PREDNISONE. [Concomitant]
     Active Substance: PREDNISONE
  5. CITALOPRAM [Concomitant]
     Active Substance: CITALOPRAM HYDROBROMIDE
  6. COLCHICINE. [Concomitant]
     Active Substance: COLCHICINE
  7. COLACE [Concomitant]
     Active Substance: DOCUSATE SODIUM
  8. OXYGEN. [Concomitant]
     Active Substance: OXYGEN
  9. PROCARDIA XL [Concomitant]
     Active Substance: NIFEDIPINE
  10. LORATADINE. [Concomitant]
     Active Substance: LORATADINE
  11. PROTONIX [Concomitant]
     Active Substance: PANTOPRAZOLE SODIUM

REACTIONS (2)
  - Fluid retention [Unknown]
  - Dyspnoea [Unknown]
